FAERS Safety Report 4500201-8 (Version None)
Quarter: 2004Q4

REPORT INFORMATION
  Report Type: 
  Country: None (occurrence: None)
  Receive Date: 20041108
  Receipt Date: 20041022
  Transmission Date: 20050328
  Serious: Yes (Hospitalization)
  Sender: FDA-Public Use
  Company Number: 200410821BCA

PATIENT
  Age: 34 Year
  Sex: Male

DRUGS (40)
  1. GAMUNEX [Suspect]
     Indication: RENAL VESSEL DISORDER
     Dosage: SEE IMAGE
     Route: 042
     Dates: start: 20040915, end: 20040916
  2. GAMUNEX [Suspect]
     Indication: TRANSPLANT REJECTION
     Dosage: SEE IMAGE
     Route: 042
     Dates: start: 20040915, end: 20040916
  3. GAMUNEX [Suspect]
     Indication: RENAL VESSEL DISORDER
     Dosage: SEE IMAGE
     Route: 042
     Dates: start: 20040923, end: 20040927
  4. GAMUNEX [Suspect]
     Indication: TRANSPLANT REJECTION
     Dosage: SEE IMAGE
     Route: 042
     Dates: start: 20040923, end: 20040927
  5. GAMUNEX [Suspect]
     Indication: RENAL VESSEL DISORDER
     Dosage: SEE IMAGE
     Route: 042
     Dates: start: 20040911
  6. GAMUNEX [Suspect]
     Indication: TRANSPLANT REJECTION
     Dosage: SEE IMAGE
     Route: 042
     Dates: start: 20040911
  7. GAMUNEX [Suspect]
     Indication: RENAL VESSEL DISORDER
     Dosage: SEE IMAGE
     Route: 042
     Dates: start: 20040912
  8. GAMUNEX [Suspect]
     Indication: TRANSPLANT REJECTION
     Dosage: SEE IMAGE
     Route: 042
     Dates: start: 20040912
  9. GAMUNEX [Suspect]
     Indication: RENAL VESSEL DISORDER
     Dosage: SEE IMAGE
     Route: 042
     Dates: start: 20040913
  10. GAMUNEX [Suspect]
     Indication: TRANSPLANT REJECTION
     Dosage: SEE IMAGE
     Route: 042
     Dates: start: 20040913
  11. GAMUNEX [Suspect]
     Indication: RENAL VESSEL DISORDER
     Dosage: SEE IMAGE
     Route: 042
     Dates: start: 20040914
  12. GAMUNEX [Suspect]
     Indication: TRANSPLANT REJECTION
     Dosage: SEE IMAGE
     Route: 042
     Dates: start: 20040914
  13. GAMUNEX [Suspect]
     Indication: RENAL VESSEL DISORDER
     Dosage: SEE IMAGE
     Route: 042
     Dates: start: 20040917
  14. GAMUNEX [Suspect]
     Indication: TRANSPLANT REJECTION
     Dosage: SEE IMAGE
     Route: 042
     Dates: start: 20040917
  15. GAMUNEX [Suspect]
     Indication: RENAL VESSEL DISORDER
     Dosage: SEE IMAGE
     Route: 042
     Dates: start: 20040922
  16. GAMUNEX [Suspect]
     Indication: TRANSPLANT REJECTION
     Dosage: SEE IMAGE
     Route: 042
     Dates: start: 20040922
  17. GAMUNEX [Suspect]
     Indication: RENAL VESSEL DISORDER
     Dosage: SEE IMAGE
     Route: 042
     Dates: start: 20040928
  18. GAMUNEX [Suspect]
     Indication: TRANSPLANT REJECTION
     Dosage: SEE IMAGE
     Route: 042
     Dates: start: 20040928
  19. GAMUNEX [Suspect]
     Indication: RENAL VESSEL DISORDER
     Dosage: SEE IMAGE
     Route: 042
     Dates: start: 20040929
  20. GAMUNEX [Suspect]
     Indication: TRANSPLANT REJECTION
     Dosage: SEE IMAGE
     Route: 042
     Dates: start: 20040929
  21. GAMUNEX [Suspect]
     Indication: RENAL VESSEL DISORDER
     Dosage: SEE IMAGE
     Route: 042
     Dates: start: 20040930
  22. GAMUNEX [Suspect]
     Indication: TRANSPLANT REJECTION
     Dosage: SEE IMAGE
     Route: 042
     Dates: start: 20040930
  23. GAMUNEX [Suspect]
  24. GAMUNEX [Suspect]
  25. GAMUNEX [Suspect]
  26. GAMUNEX [Suspect]
  27. GAMUNEX [Suspect]
  28. GAMUNEX [Suspect]
  29. GAMUNEX [Suspect]
  30. GAMUNEX [Suspect]
  31. GAMUNEX [Suspect]
  32. GAMUNEX [Suspect]
  33. GAMUNEX [Suspect]
  34. PREDNISONE [Concomitant]
  35. PROGRAF [Concomitant]
  36. TIAZAC [Concomitant]
  37. PANTOPRAZOLE SODIUM [Concomitant]
  38. RIVOTRIL [Concomitant]
  39. KAYEXALATE [Concomitant]
  40. SODIUM BICARBONATE [Concomitant]

REACTIONS (1)
  - HAEMOLYSIS [None]
